FAERS Safety Report 8217545-9 (Version None)
Quarter: 2012Q1

REPORT INFORMATION
  Report Type: 
  Country: None (occurrence: None)
  Receive Date: 20120314
  Receipt Date: 20120306
  Transmission Date: 20120608
  Serious: Yes (Other)
  Sender: FDA-Public Use
  Company Number: 2012MA003254

PATIENT
  Age: 75 Year
  Sex: Male

DRUGS (10)
  1. METFORMIN HCL [Suspect]
  2. VERAPAMIL [Concomitant]
  3. WARFARIN SODIUM [Suspect]
  4. PREDNISOLONE [Suspect]
  5. RAMIPRIL [Suspect]
     Indication: PRODUCT USED FOR UNKNOWN INDICATION
  6. ATORVASTATIN [Suspect]
  7. CYSTEINE (CYSTEINE) [Suspect]
  8. ALBUTEROL SULFATE [Suspect]
  9. FUROSEMIDE [Concomitant]
  10. FORMOTEROL FUMARATE [Suspect]

REACTIONS (1)
  - HALLUCINATION [None]
